FAERS Safety Report 10145860 (Version 1)
Quarter: 2014Q2

REPORT INFORMATION
  Report Type: Report from Study
  Country: US (occurrence: US)
  Receive Date: 20140501
  Receipt Date: 20140501
  Transmission Date: 20141212
  Serious: No
  Sender: FDA-Public Use
  Company Number: US-ABBVIE-13P-163-1138450-00

PATIENT
  Sex: Female

DRUGS (2)
  1. CREON [Suspect]
     Indication: CYSTIC FIBROSIS
     Dosage: 5 PILLS (24000 UNIT DOSE) WITH EACH MEAL
  2. VARIETY OF MEDICATIONS FOR CYSTIC FIBROSIS [Concomitant]
     Indication: CYSTIC FIBROSIS

REACTIONS (3)
  - Drug dose omission [Unknown]
  - Constipation [Unknown]
  - Muscle spasms [Unknown]
